FAERS Safety Report 24577783 (Version 1)
Quarter: 2024Q4

REPORT INFORMATION
  Report Type: Spontaneous
  Country: IT (occurrence: IT)
  Receive Date: 20241104
  Receipt Date: 20241104
  Transmission Date: 20250115
  Serious: Yes (Hospitalization)
  Sender: ABBVIE
  Company Number: None

PATIENT
  Age: 14 Year
  Sex: Male
  Weight: 67 kg

DRUGS (3)
  1. DALBAVANCIN [Suspect]
     Active Substance: DALBAVANCIN
     Indication: Chronic granulomatous disease
     Dosage: DRUG GIVEN I.V. WITH PERIPHERAL ACCESS
     Route: 042
     Dates: start: 20241009, end: 20241009
  2. ANAKINRA [Concomitant]
     Active Substance: ANAKINRA
     Indication: Chronic granulomatous disease
     Dosage: 100 MG/48 H
     Route: 058
     Dates: start: 20240730
  3. PREDNISONE [Concomitant]
     Active Substance: PREDNISONE
     Indication: Chronic granulomatous disease
     Dosage: 5 MG/DAY
     Route: 048
     Dates: start: 20240401

REACTIONS (1)
  - Superficial vein thrombosis [Recovering/Resolving]

NARRATIVE: CASE EVENT DATE: 20241010
